FAERS Safety Report 7976767-2 (Version None)
Quarter: 2011Q4

REPORT INFORMATION
  Report Type: 
  Country: None (occurrence: None)
  Receive Date: 20111213
  Receipt Date: 20111107
  Transmission Date: 20120403
  Serious: Yes (Other)
  Sender: FDA-Public Use
  Company Number: US-AMGEN-USASP2011058393

PATIENT

DRUGS (1)
  1. ENBREL [Suspect]
     Indication: PSORIASIS
     Dosage: UNK

REACTIONS (6)
  - LYMPHADENOPATHY [None]
  - VIRAL INFECTION [None]
  - HYPERSENSITIVITY [None]
  - MALAISE [None]
  - PYREXIA [None]
  - MYOPATHY [None]
